FAERS Safety Report 8436692-X (Version None)
Quarter: 2012Q2

REPORT INFORMATION
  Report Type: 
  Country: None (occurrence: None)
  Receive Date: 20120614
  Receipt Date: 20120605
  Transmission Date: 20120825
  Serious: Yes (Other)
  Sender: FDA-Public Use
  Company Number: CA-JNJFOC-20120603466

PATIENT
  Sex: Male
  Weight: 2.27 kg

DRUGS (8)
  1. PREDNISONE TAB [Suspect]
     Indication: FOETAL EXPOSURE DURING PREGNANCY
     Route: 064
     Dates: start: 20111024
  2. IMURAN [Suspect]
     Indication: FOETAL EXPOSURE DURING PREGNANCY
     Route: 064
     Dates: start: 20110209
  3. CALCIUM [Concomitant]
  4. REMICADE [Suspect]
     Indication: FOETAL EXPOSURE DURING PREGNANCY
     Route: 064
  5. FERROUS GLUCONATE [Concomitant]
  6. EXTRA STRENGTH TYLENOL [Suspect]
     Indication: FOETAL EXPOSURE DURING PREGNANCY
     Route: 064
  7. PREGVIT [Concomitant]
  8. VITAMIN D [Concomitant]

REACTIONS (1)
  - PREMATURE BABY [None]
